FAERS Safety Report 22637578 (Version 1)
Quarter: 2023Q2

REPORT INFORMATION
  Report Type: Spontaneous
  Country: ES (occurrence: ES)
  Receive Date: 20230626
  Receipt Date: 20230626
  Transmission Date: 20230721
  Serious: Yes (Life-Threatening, Hospitalization)
  Sender: FDA-Public Use
  Company Number: None

PATIENT
  Age: 47 Year
  Sex: Male
  Weight: 91.1 kg

DRUGS (7)
  1. AMLODIPINE\HYDROCHLOROTHIAZIDE\OLMESARTAN [Interacting]
     Active Substance: AMLODIPINE\HYDROCHLOROTHIAZIDE\OLMESARTAN
     Indication: Suicidal ideation
     Dosage: 480MG/120MG/300MG, OLMESARTAN/AMLODIPINE/HYDROCHLOROTHIAZIDE 40 MG/10 MG/25 MG 28 TABLETS, UNIT DOSE
     Route: 065
     Dates: start: 20230508, end: 20230508
  2. ATORVASTATIN [Interacting]
     Active Substance: ATORVASTATIN
     Indication: Suicidal ideation
     Dosage: 560MG, UNIT DOSE : 560 MG, FREQUENCY TIME: 1 TOTAL, DURATION : 1 DAYS,  (7400A)
     Route: 065
     Dates: start: 20230508, end: 20230508
  3. FLUOXETINE [Interacting]
     Active Substance: FLUOXETINE HYDROCHLORIDE
     Indication: Suicidal ideation
     Dosage: 1000MG, UNIT DOSE : 1000 MG, FREQUENCY TIME: 1 TOTAL, DURATION : 1 DAYS, (2331A)
     Route: 065
     Dates: start: 20230508, end: 20230508
  4. MIRTAZAPINE [Interacting]
     Active Substance: MIRTAZAPINE
     Indication: Suicidal ideation
     Dosage: 900MG, UNIT DOSE : 900 MG, FREQUENCY TIME: 1 TOTAL, DURATION : 1 DAYS,  (2704A)
     Route: 065
     Dates: start: 20230508, end: 20230508
  5. EBASTINE [Interacting]
     Active Substance: EBASTINE
     Indication: Suicidal ideation
     Dosage: 200MG, UNIT DOSE : 200 MG, FREQUENCY TIME: 1 TOTAL, DURATION : 1 DAYS, (2231A)
     Route: 065
     Dates: start: 20230508, end: 20230508
  6. DEFLAZACORT [Interacting]
     Active Substance: DEFLAZACORT
     Indication: Suicidal ideation
     Dosage: 240MG, UNIT DOSE : 240 MG, FREQUENCY TIME: 1 TOTAL, DURATION : 1 DAYS, (2546A)
     Route: 065
     Dates: start: 20230508, end: 20230508
  7. BROMAZEPAM [Interacting]
     Active Substance: BROMAZEPAM
     Indication: Suicidal ideation
     Dosage: 90MG, UNIT DOSE : 90 MG, FREQUENCY TIME: 1 TOTAL, DURATION : 1 DAYS, STRENGTH : 1.5 MG, 30 CAPSULES
     Route: 065
     Dates: start: 20230508, end: 20230508

REACTIONS (4)
  - Haemodynamic instability [Recovered/Resolved]
  - Pneumonia aspiration [Recovered/Resolved]
  - Depressed level of consciousness [Recovered/Resolved]
  - Drug interaction [Unknown]

NARRATIVE: CASE EVENT DATE: 20230508
